FAERS Safety Report 12157583 (Version 1)
Quarter: 2016Q1

REPORT INFORMATION
  Report Type: Spontaneous
  Country: US (occurrence: ZA)
  Receive Date: 20160308
  Receipt Date: 20160308
  Transmission Date: 20160526
  Serious: Yes (Hospitalization)
  Sender: FDA-Public Use
  Company Number: US-CIPLA LTD.-2016US01867

PATIENT

DRUGS (9)
  1. RITONAVIR. [Suspect]
     Active Substance: RITONAVIR
     Indication: PERINATAL HIV INFECTION
     Dosage: UNK, BID
     Route: 065
  2. RITONAVIR. [Suspect]
     Active Substance: RITONAVIR
     Dosage: UNK
     Route: 065
  3. STAVUDINE. [Suspect]
     Active Substance: STAVUDINE
     Indication: PERINATAL HIV INFECTION
     Dosage: UNK, BID
     Route: 065
  4. LAMIVUDINE. [Suspect]
     Active Substance: LAMIVUDINE
     Indication: PERINATAL HIV INFECTION
     Dosage: UNK, BID
     Route: 065
  5. ABACAVIR. [Suspect]
     Active Substance: ABACAVIR
     Indication: PERINATAL HIV INFECTION
     Dosage: UNK, BID
     Route: 065
  6. LOPINAVIR [Suspect]
     Active Substance: LOPINAVIR
     Dosage: UNK
     Route: 065
  7. EFAVIRENZ [Suspect]
     Active Substance: EFAVIRENZ
     Indication: PERINATAL HIV INFECTION
     Dosage: 200 MG, QD
     Route: 065
  8. LOPINAVIR [Suspect]
     Active Substance: LOPINAVIR
     Indication: PERINATAL HIV INFECTION
     Dosage: UNK, BID
     Route: 065
  9. EFAVIRENZ [Suspect]
     Active Substance: EFAVIRENZ
     Dosage: 300 MG, QD
     Route: 065

REACTIONS (10)
  - Hypotonia [Recovering/Resolving]
  - Nervous system disorder [Recovering/Resolving]
  - Dysarthria [Recovering/Resolving]
  - Abdominal pain upper [Unknown]
  - Vomiting [Unknown]
  - Intention tremor [Recovering/Resolving]
  - Urinary tract infection [Recovering/Resolving]
  - Gait disturbance [Recovering/Resolving]
  - Ataxia [Recovering/Resolving]
  - Cogwheel rigidity [Recovering/Resolving]
